FAERS Safety Report 4777222-3 (Version None)
Quarter: 2005Q3

REPORT INFORMATION
  Report Type: 
  Country: None (occurrence: None)
  Receive Date: 20050923
  Receipt Date: 20050915
  Transmission Date: 20060218
  Serious: Yes (Death, Hospitalization)
  Sender: FDA-Public Use
  Company Number: PK-BRACCO-BRO-009104

PATIENT
  Sex: Male

DRUGS (1)
  1. IOPAMIRO [Suspect]
     Route: 037
     Dates: start: 20040701, end: 20040701

REACTIONS (2)
  - CONVULSION [None]
  - OPISTHOTONUS [None]
